FAERS Safety Report 6581397-3 (Version None)
Quarter: 2010Q1

REPORT INFORMATION
  Report Type: 
  Country: None (occurrence: None)
  Receive Date: 20100215
  Receipt Date: 20100208
  Transmission Date: 20100710
  Serious: Yes (Hospitalization, Other)
  Sender: FDA-Public Use
  Company Number: CHPA2009US14073

PATIENT
  Age: 83 Year
  Sex: Female

DRUGS (3)
  1. KERI SENSITIVE SKIN(NCH) [Suspect]
     Indication: DRY SKIN
     Dosage: UNK, UNK
     Route: 061
     Dates: start: 20090401, end: 20090501
  2. KERI SENSITIVE SKIN(NCH) [Suspect]
     Indication: HAIR TEXTURE ABNORMAL
     Dosage: UNK, UNK
     Dates: start: 19980101
  3. ^OIL OF OLAY^ [Concomitant]

REACTIONS (9)
  - ALOPECIA [None]
  - APPLICATION SITE EXFOLIATION [None]
  - CARDIAC DISORDER [None]
  - HAEMORRHAGE [None]
  - HAIR TEXTURE ABNORMAL [None]
  - ILL-DEFINED DISORDER [None]
  - MALAISE [None]
  - POISONING [None]
  - TRANSIENT ISCHAEMIC ATTACK [None]
